FAERS Safety Report 15262809 (Version 1)
Quarter: 2018Q3

REPORT INFORMATION
  Report Type: Spontaneous
  Country: US (occurrence: US)
  Receive Date: 20180720
  Receipt Date: 20180720
  Transmission Date: 20181010
  Serious: No
  Sender: FDA-Public Use
  Company Number: None

PATIENT
  Age: 51 Year
  Sex: Female
  Weight: 73.94 kg

DRUGS (2)
  1. PRIFTIN [Suspect]
     Active Substance: RIFAPENTINE
     Indication: TUBERCULOSIS
     Route: 048
     Dates: start: 20180604, end: 20180702
  2. ISONIAZID 300 MG [Suspect]
     Active Substance: ISONIAZID
     Indication: TUBERCULOSIS
     Route: 048
     Dates: start: 20180604, end: 20180702

REACTIONS (4)
  - Lip swelling [None]
  - Eyelid oedema [None]
  - Rash macular [None]
  - Pruritus [None]

NARRATIVE: CASE EVENT DATE: 20180704
